FAERS Safety Report 6465229-X (Version None)
Quarter: 2009Q4

REPORT INFORMATION
  Report Type: 
  Country: None (occurrence: None)
  Receive Date: 20091201
  Receipt Date: 20090619
  Transmission Date: 20100525
  Serious: No
  Sender: FDA-Public Use
  Company Number: US-AMGEN-COG346306

PATIENT
  Sex: Male

DRUGS (1)
  1. ENBREL [Suspect]
     Indication: PSORIASIS
     Route: 058
     Dates: start: 20081014

REACTIONS (4)
  - FALL [None]
  - PATELLA FRACTURE [None]
  - SKIN ODOUR ABNORMAL [None]
  - URINE ODOUR ABNORMAL [None]
